FAERS Safety Report 8122212-6 (Version None)
Quarter: 2012Q1

REPORT INFORMATION
  Report Type: 
  Country: None (occurrence: None)
  Receive Date: 20120208
  Receipt Date: 20120124
  Transmission Date: 20120608
  Serious: Yes (Other)
  Sender: FDA-Public Use
  Company Number: US-JNJCP-30000087880

PATIENT
  Age: 24 Year
  Sex: Female
  Weight: 98 kg

DRUGS (4)
  1. NONE [Concomitant]
  2. NTG SKIN ID FOAM CLEANSER USA NTSIFCUS [Suspect]
     Indication: ACNE
     Dosage: PEA SIZE AMOUNT, ONCE A DAY
     Route: 061
     Dates: start: 20120122, end: 20120123
  3. NTG SKIN ID ANTI ACNE TREATMENT USA NTSIAAUS [Suspect]
     Indication: ACNE
     Dosage: PEA SIZE AMOUNT, ONCE A DAY
     Route: 061
     Dates: start: 20120122, end: 20120123
  4. NTG SKIN ID (53) MOISTURIZER USA NTSIMOUS [Suspect]
     Indication: ACNE
     Dosage: PEA SIZE AMOUNT, ONCE A DAY
     Route: 061
     Dates: start: 20120122, end: 20120123

REACTIONS (1)
  - APPLICATION SITE SWELLING [None]
